FAERS Safety Report 20207422 (Version 3)
Quarter: 2022Q2

REPORT INFORMATION
  Report Type: Spontaneous
  Country: US (occurrence: US)
  Receive Date: 20211220
  Receipt Date: 20220408
  Transmission Date: 20220720
  Serious: Yes (Other)
  Sender: FDA-Public Use
  Company Number: US-PFIZER INC-202101566377

PATIENT
  Age: 65 Year
  Sex: Female
  Weight: 70.295 kg

DRUGS (9)
  1. IBRANCE [Suspect]
     Active Substance: PALBOCICLIB
     Indication: Breast cancer female
     Dosage: 125 MG, CYCLIC (1 TABLET DAILY FOR 21 DAYS, FOLLOWED BY A 7 DAY REST PERIOD)
     Dates: start: 20211101
  2. XGEVA [Concomitant]
     Active Substance: DENOSUMAB
     Dosage: 120 MG(120 MG/1.7 VIAL)
  3. BIOTIN [Concomitant]
     Active Substance: BIOTIN
     Dosage: 10000 UG
  4. ZYRTEC [Concomitant]
     Active Substance: CETIRIZINE HYDROCHLORIDE
     Dosage: 10 MG
  5. SYMBICORT [Concomitant]
     Active Substance: BUDESONIDE\FORMOTEROL FUMARATE DIHYDRATE
     Dosage: 160-4.5MCG
  6. LETROZOLE [Concomitant]
     Active Substance: LETROZOLE
     Dosage: 2.5 MG
  7. CHLORPHENIRAMINE MALEATE [Concomitant]
     Active Substance: CHLORPHENIRAMINE MALEATE
     Dosage: UNK
  8. SERTRALINE HYDROCHLORIDE [Concomitant]
     Active Substance: SERTRALINE HYDROCHLORIDE
     Dosage: 50 MG
  9. XYLOMETAZOLINE HYDROCHLORIDE [Concomitant]
     Active Substance: XYLOMETAZOLINE HYDROCHLORIDE
     Dosage: 25 UG

REACTIONS (6)
  - Haemorrhage [Unknown]
  - White blood cell count decreased [Recovering/Resolving]
  - Haemorrhoids [Unknown]
  - Constipation [Unknown]
  - Pruritus [Unknown]
  - Fatigue [Unknown]

NARRATIVE: CASE EVENT DATE: 20210101
